FAERS Safety Report 19814520 (Version 1)
Quarter: 2021Q3

REPORT INFORMATION
  Report Type: Spontaneous
  Country: US (occurrence: US)
  Receive Date: 20210907
  Receipt Date: 20210907
  Transmission Date: 20211014
  Serious: Yes (Death)
  Sender: FDA-Public Use
  Company Number: None

PATIENT
  Age: 75 Year
  Sex: Female
  Weight: 44 kg

DRUGS (2)
  1. BREYANZI [Suspect]
     Active Substance: LISOCABTAGENE MARALEUCEL
     Indication: DIFFUSE LARGE B-CELL LYMPHOMA
     Dosage: ?          OTHER DOSE:50 X 10E6 CELLS;?
     Route: 042
     Dates: start: 20210813, end: 20210813
  2. BREYANZI [Suspect]
     Active Substance: LISOCABTAGENE MARALEUCEL
     Indication: DIFFUSE LARGE B-CELL LYMPHOMA
     Dosage: ?          OTHER DOSE:50 X 10E6 CELLS;?
     Route: 042
     Dates: start: 20210813, end: 20210813

REACTIONS (7)
  - Hypotension [None]
  - Renal impairment [None]
  - Immune effector cell-associated neurotoxicity syndrome [None]
  - Cytokine release syndrome [None]
  - Acute respiratory failure [None]
  - Dialysis [None]
  - General physical health deterioration [None]

NARRATIVE: CASE EVENT DATE: 20210821
